FAERS Safety Report 23588540 (Version 1)
Quarter: 2024Q1

REPORT INFORMATION
  Report Type: Spontaneous
  Country: US (occurrence: US)
  Receive Date: 20240302
  Receipt Date: 20240302
  Transmission Date: 20240410
  Serious: Yes (Other)
  Sender: FDA-Public Use
  Company Number: US-LUPIN PHARMACEUTICALS INC.-2024-01521

PATIENT
  Age: 63 Year
  Sex: Male

DRUGS (6)
  1. CARVEDILOL [Interacting]
     Active Substance: CARVEDILOL
     Indication: Left ventricular failure
     Dosage: 50 MG, QD
     Route: 065
  2. CARVEDILOL [Interacting]
     Active Substance: CARVEDILOL
     Dosage: 12.5 MG, QD
     Route: 065
  3. SACUBITRIL\VALSARTAN [Interacting]
     Active Substance: SACUBITRIL\VALSARTAN
     Indication: Left ventricular failure
     Dosage: UNK, BID
     Route: 065
  4. SPIRONOLACTONE [Interacting]
     Active Substance: SPIRONOLACTONE
     Indication: Left ventricular failure
     Dosage: 25 MG, QD
     Route: 065
  5. TIRZEPATIDE [Interacting]
     Active Substance: TIRZEPATIDE
     Indication: Product used for unknown indication
     Dosage: 2.5 MG, ONCE WEEKLY, EVERY 4 WEEKS, TITRATED BY 2.5 MG/WEEK EVERY 4 WEEKS
     Route: 065
  6. TIRZEPATIDE [Interacting]
     Active Substance: TIRZEPATIDE
     Dosage: 12.5 MG, ONCE WEEKLY OVER 4 MONTHS
     Route: 065

REACTIONS (5)
  - Drug interaction [Recovered/Resolved]
  - Renal ischaemia [Unknown]
  - Hypotension [Recovered/Resolved]
  - Presyncope [Unknown]
  - Orthostatic hypotension [Recovering/Resolving]
